FAERS Safety Report 16555749 (Version 1)
Quarter: 2019Q3

REPORT INFORMATION
  Report Type: Spontaneous
  Country: AU (occurrence: AU)
  Receive Date: 20190710
  Receipt Date: 20190710
  Transmission Date: 20191004
  Serious: Yes (Other)
  Sender: FDA-Public Use
  Company Number: AU-MYLANLABS-2019M1058691

PATIENT
  Age: 32 Year
  Sex: Female

DRUGS (5)
  1. LABETALOL [Suspect]
     Active Substance: LABETALOL\LABETALOL HYDROCHLORIDE
     Indication: HYPERTENSION
     Dosage: UNK
     Route: 065
  2. POTASSIUM CITRATE. [Suspect]
     Active Substance: POTASSIUM CITRATE
     Indication: HYPERCALCAEMIA
     Dosage: UNK
  3. CALCITONIN SALMON. [Suspect]
     Active Substance: CALCITONIN SALMON
     Dosage: 200 INTERNATIONAL UNIT, TID
     Route: 065
  4. CALCITONIN SALMON. [Suspect]
     Active Substance: CALCITONIN SALMON
     Indication: HYPERCALCAEMIA
     Dosage: 100 INTERNATIONAL UNIT, BID
     Route: 058
  5. PREDNISOLONE. [Suspect]
     Active Substance: PREDNISOLONE
     Indication: HYPERCALCAEMIA
     Dosage: 10-25 MILLIGRAM, QD
     Route: 048

REACTIONS (4)
  - Hypertension [Recovering/Resolving]
  - Maternal exposure during pregnancy [Recovered/Resolved]
  - Renal impairment [Recovering/Resolving]
  - Hypercalcaemia [Recovering/Resolving]
